FAERS Safety Report 10255083 (Version 1)
Quarter: 2014Q2

REPORT INFORMATION
  Report Type: Spontaneous
  Country: CA (occurrence: CA)
  Receive Date: 20140624
  Receipt Date: 20140624
  Transmission Date: 20141212
  Serious: Yes (Hospitalization)
  Sender: FDA-Public Use
  Company Number: CA-PFIZER INC-2014168665

PATIENT
  Age: 68 Year
  Sex: Male

DRUGS (11)
  1. REVATIO [Suspect]
     Indication: PULMONARY ARTERIAL HYPERTENSION
     Dosage: 20 MG, 3X/DAY
     Route: 048
  2. VOLIBRIS [Concomitant]
     Dosage: UNK
  3. RAMIPRIL [Concomitant]
     Dosage: UNK
  4. IRON [Concomitant]
     Dosage: UNK
  5. FUROSEMIDE [Concomitant]
     Dosage: UNK
  6. METFORMIN [Concomitant]
     Dosage: UNK
  7. FLOMAX [Concomitant]
     Dosage: UNK
  8. ACYCLOVIR [Concomitant]
     Dosage: UNK
  9. ALLOPURINOL [Concomitant]
     Dosage: UNK
  10. SPIRONOLACTONE [Concomitant]
     Dosage: UNK
  11. METOPROLOL [Concomitant]
     Dosage: UNK

REACTIONS (2)
  - Urinary retention [Recovered/Resolved]
  - Dyspnoea [Recovered/Resolved]
